FAERS Safety Report 5729475-2 (Version None)
Quarter: 2008Q2

REPORT INFORMATION
  Report Type: 
  Country: None (occurrence: None)
  Receive Date: 20080506
  Receipt Date: 20080428
  Transmission Date: 20081010
  Serious: Yes (Other)
  Sender: FDA-Public Use
  Company Number: GB-AMGEN-US270151

PATIENT
  Sex: Male

DRUGS (4)
  1. ENBREL [Suspect]
     Indication: PSORIASIS
     Route: 058
     Dates: start: 20080109, end: 20080220
  2. ENBREL [Suspect]
     Indication: ANKYLOSING SPONDYLITIS
  3. ETODOLAC [Concomitant]
     Indication: PSORIATIC ARTHROPATHY
     Route: 048
     Dates: start: 20080201
  4. ATARAX [Concomitant]
     Indication: PRURITUS
     Dosage: 25 MG DAILY AS NEEDED
     Route: 065
     Dates: start: 20060101

REACTIONS (1)
  - IRITIS [None]
